FAERS Safety Report 24113154 (Version 1)
Quarter: 2024Q3

REPORT INFORMATION
  Report Type: Spontaneous
  Country: CN (occurrence: CN)
  Receive Date: 20240719
  Receipt Date: 20240719
  Transmission Date: 20241016
  Serious: Yes (Hospitalization, Other)
  Sender: ORGANON
  Company Number: CN-ORGANON-O2407CHN001572

PATIENT
  Age: 72 Year
  Sex: Male
  Weight: 54.9 kg

DRUGS (1)
  1. DIPROSPAN [Suspect]
     Active Substance: BETAMETHASONE DIPROPIONATE\BETAMETHASONE SODIUM PHOSPHATE
     Indication: Symptomatic treatment
     Dosage: 1 ML, TID, IV DRIP
     Route: 041
     Dates: start: 20240620, end: 20240620

REACTIONS (3)
  - Diabetic ketoacidosis [Recovering/Resolving]
  - Hyperkalaemia [Recovering/Resolving]
  - Product use issue [Unknown]

NARRATIVE: CASE EVENT DATE: 20240708
